FAERS Safety Report 15441712 (Version 2)
Quarter: 2018Q4

REPORT INFORMATION
  Report Type: Spontaneous
  Country: CZ (occurrence: CZ)
  Receive Date: 20180928
  Receipt Date: 20181008
  Transmission Date: 20190204
  Serious: Yes (Other)
  Sender: FDA-Public Use
  Company Number: CZ-TEVA-773538ROM

PATIENT
  Age: 32 Year
  Sex: Female

DRUGS (7)
  1. VINCRISTINE [Suspect]
     Active Substance: VINCRISTINE
     Indication: HODGKIN^S DISEASE
     Dosage: 6 CYCLES OF BEACOPP REGIMEN
     Route: 042
     Dates: start: 201108, end: 201112
  2. CYCLOPHOSPHAMIDE. [Suspect]
     Active Substance: CYCLOPHOSPHAMIDE
     Indication: HODGKIN^S DISEASE
     Dosage: 6 CYCLES OF BEACOPP REGIMEN
     Route: 042
     Dates: start: 201108, end: 201112
  3. PREDNISONE. [Suspect]
     Active Substance: PREDNISONE
     Indication: HODGKIN^S DISEASE
     Dosage: 6 CYCLES OF BEACOPP REGIMEN
     Route: 042
     Dates: start: 201108, end: 201112
  4. BLEOMYCIN [Suspect]
     Active Substance: BLEOMYCIN SULFATE
     Indication: HODGKIN^S DISEASE
     Dosage: 6 CYCLES OF BEACOPP REGIMEN
     Route: 042
     Dates: start: 201108, end: 201112
  5. ETOPOSIDE. [Suspect]
     Active Substance: ETOPOSIDE
     Indication: HODGKIN^S DISEASE
     Dosage: 6 CYCLES OF BEACOPP REGIMEN
     Route: 042
     Dates: start: 201108, end: 201112
  6. PROCARBAZINE [Suspect]
     Active Substance: PROCARBAZINE
     Indication: HODGKIN^S DISEASE
     Dosage: 6 CYCLES OF BEACOPP REGIMEN
     Route: 042
     Dates: start: 201108, end: 201112
  7. DOXORUBICIN [Suspect]
     Active Substance: DOXORUBICIN
     Indication: HODGKIN^S DISEASE
     Dosage: 6 CYCLES OF BEACOPP REGIMEN
     Route: 042
     Dates: start: 201108, end: 201112

REACTIONS (2)
  - Fatigue [Recovered/Resolved]
  - Neuropathy peripheral [Recovered/Resolved]

NARRATIVE: CASE EVENT DATE: 2011
